FAERS Safety Report 7646408-2 (Version None)
Quarter: 2011Q3

REPORT INFORMATION
  Report Type: 
  Country: None (occurrence: None)
  Receive Date: 20110801
  Receipt Date: 20110722
  Transmission Date: 20111222
  Serious: Yes (Hospitalization, Other)
  Sender: FDA-Public Use
  Company Number: GB-JNJFOC-20110710963

PATIENT
  Age: 35 Year
  Sex: Male

DRUGS (13)
  1. HALOPERIDOL [Suspect]
     Route: 048
     Dates: start: 20101115, end: 20101128
  2. PROCYCLIDINE HYDROCHLORIDE 2MG TAB [Concomitant]
     Indication: PRODUCT USED FOR UNKNOWN INDICATION
     Route: 065
     Dates: start: 20101227, end: 20110110
  3. HALOPERIDOL [Suspect]
     Route: 048
     Dates: start: 20101213, end: 20101219
  4. HALOPERIDOL [Suspect]
     Route: 048
     Dates: end: 20101017
  5. LITHIUM CARBONATE [Suspect]
     Indication: SCHIZOAFFECTIVE DISORDER
     Route: 065
     Dates: end: 20110109
  6. HALOPERIDOL [Suspect]
     Route: 048
     Dates: start: 20101018, end: 20101031
  7. HALOPERIDOL [Suspect]
     Route: 048
     Dates: start: 20101101, end: 20101114
  8. QUETIAPINE [Concomitant]
     Indication: SCHIZOPHRENIA
     Route: 048
  9. LITHIUM CARBONATE [Suspect]
     Route: 065
     Dates: start: 20110110, end: 20110117
  10. HALOPERIDOL [Suspect]
     Route: 048
     Dates: start: 20101129, end: 20101212
  11. PROCYCLIDINE HYDROCHLORIDE 2MG TAB [Concomitant]
     Route: 065
     Dates: end: 20101128
  12. HALOPERIDOL [Suspect]
     Indication: SCHIZOPHRENIA
     Dosage: 15-NOV-10 - 28-NOV-10 20MG DAILY. 29-NOV-10 - 12-DEC-10 15MG DAILY. 13-DEC-10 - 19-DEC-10 10MG DAILY
     Route: 048
     Dates: start: 20101220, end: 20101227
  13. PROCYCLIDINE HYDROCHLORIDE 2MG TAB [Concomitant]
     Route: 065
     Dates: start: 20101129, end: 20101226

REACTIONS (5)
  - EXTRAPYRAMIDAL DISORDER [None]
  - GENERAL PHYSICAL HEALTH DETERIORATION [None]
  - CONDITION AGGRAVATED [None]
  - WITHDRAWAL SYNDROME [None]
  - SCHIZOPHRENIA [None]
